FAERS Safety Report 7652874-9 (Version None)
Quarter: 2011Q3

REPORT INFORMATION
  Report Type: 
  Country: None (occurrence: None)
  Receive Date: 20110802
  Receipt Date: 20110802
  Transmission Date: 20111222
  Serious: Yes (Life-Threatening, Disabling)
  Sender: FDA-Public Use
  Company Number: None

PATIENT
  Sex: Female
  Weight: 58.0604 kg

DRUGS (1)
  1. LAMOTRIGINE [Suspect]
     Indication: PARAESTHESIA
     Dosage: 25 MG ONE TAB FOR 14 DAYS; ONE TAB TWICE DY 14 DAYS; 2 TABS TWICE DAILY 14 DAYS ORALLY
     Route: 048
     Dates: start: 20100803, end: 20100831

REACTIONS (1)
  - STEVENS-JOHNSON SYNDROME [None]
